FAERS Safety Report 9402722 (Version 2)
Quarter: 2013Q3

REPORT INFORMATION
  Report Type: Spontaneous
  Country: JP (occurrence: JP)
  Receive Date: 20130716
  Receipt Date: 20130731
  Transmission Date: 20140515
  Serious: Yes (Other)
  Sender: FDA-Public Use
  Company Number: JP-ABBOTT-13P-087-1117158-00

PATIENT
  Age: 37 Year
  Sex: Male

DRUGS (13)
  1. NORVIR [Suspect]
     Indication: PRODUCT USED FOR UNKNOWN INDICATION
  2. LAMIVUDINE [Suspect]
     Indication: ANTIRETROVIRAL THERAPY
  3. DARUNAVIR [Suspect]
     Indication: ANTIRETROVIRAL THERAPY
  4. RALTEGRAVIR [Suspect]
     Indication: ANTIRETROVIRAL THERAPY
  5. ETRAVIRINE [Suspect]
     Indication: ANTIRETROVIRAL THERAPY
  6. EMTRICITABINE [Suspect]
     Indication: ANTIRETROVIRAL THERAPY
  7. GLIMEPIRIDE [Concomitant]
     Indication: PRODUCT USED FOR UNKNOWN INDICATION
     Route: 048
  8. PIOGLITAZONE [Concomitant]
     Indication: PRODUCT USED FOR UNKNOWN INDICATION
  9. PIOGLITAZONE [Concomitant]
  10. VOGLIBOSE [Concomitant]
     Indication: PRODUCT USED FOR UNKNOWN INDICATION
  11. VOGLIBOSE [Concomitant]
  12. REPAGLINIDE [Concomitant]
     Indication: PRODUCT USED FOR UNKNOWN INDICATION
  13. REPAGLINIDE [Concomitant]

REACTIONS (3)
  - Encephalitis cytomegalovirus [Recovered/Resolved]
  - Type 1 diabetes mellitus [Recovering/Resolving]
  - Immune reconstitution inflammatory syndrome [Unknown]
